FAERS Safety Report 21984712 (Version 1)
Quarter: 2023Q1

REPORT INFORMATION
  Report Type: Spontaneous
  Country: US (occurrence: None)
  Receive Date: 20230210
  Receipt Date: 20230210
  Transmission Date: 20230418
  Serious: No
  Sender: FDA-Public Use
  Company Number: None

PATIENT
  Age: 61 Year
  Sex: Male

DRUGS (2)
  1. DICLOFENAC [Suspect]
     Active Substance: DICLOFENAC
     Indication: Neuralgia
  2. DICLOFENAC [Suspect]
     Active Substance: DICLOFENAC
     Indication: Neuritis

REACTIONS (2)
  - Aphasia [None]
  - Therapy cessation [None]

NARRATIVE: CASE EVENT DATE: 20230210
